FAERS Safety Report 8888994 (Version 5)
Quarter: 2013Q2

REPORT INFORMATION
  Report Type: Spontaneous
  Country: US (occurrence: US)
  Receive Date: 20121106
  Receipt Date: 20130510
  Transmission Date: 20140414
  Serious: Yes (Hospitalization, Other)
  Sender: FDA-Public Use
  Company Number: US-009507513-1211USA002224

PATIENT
  Sex: Female

DRUGS (4)
  1. FOSAMAX [Suspect]
     Indication: OSTEOPENIA
     Dosage: 70 MG, QW
     Route: 048
     Dates: start: 200303, end: 201008
  2. FOSAMAX [Suspect]
     Indication: OSTEOPENIA
     Dosage: 70 MG, QW
     Route: 048
     Dates: start: 20090311
  3. ALENDRONATE SODIUM [Suspect]
     Indication: OSTEOPENIA
     Dosage: 70 MG, QW
     Route: 048
     Dates: start: 20090815, end: 20100420
  4. VITAMIN B (UNSPECIFIED) [Concomitant]
     Indication: PRODUCT USED FOR UNKNOWN INDICATION
     Dosage: 1000 MG, QD
     Route: 048
     Dates: start: 2009

REACTIONS (17)
  - Femur fracture [Unknown]
  - Open reduction of fracture [Unknown]
  - Respiratory failure [Unknown]
  - Knee arthroplasty [Unknown]
  - Upper limb fracture [Unknown]
  - Bone density decreased [Unknown]
  - Vitamin D deficiency [Unknown]
  - Osteoarthritis [Unknown]
  - Depression [Unknown]
  - Cardiac murmur [Unknown]
  - Sedation [Unknown]
  - Osteoporosis [Unknown]
  - Cataract [Unknown]
  - Cataract operation [Unknown]
  - Tonsillectomy [Unknown]
  - Left ventricular hypertrophy [Unknown]
  - Tooth extraction [Unknown]
